FAERS Safety Report 17624598 (Version 2)
Quarter: 2021Q3

REPORT INFORMATION
  Report Type: Spontaneous
  Country: US (occurrence: US)
  Receive Date: 20200403
  Receipt Date: 20210813
  Transmission Date: 20211014
  Serious: Yes (Hospitalization, Other)
  Sender: FDA-Public Use
  Company Number: US-TEVA-2020-US-1217077

PATIENT
  Age: 92 Year
  Sex: Female
  Weight: 56.6 kg

DRUGS (20)
  1. ASPIRIN. [Concomitant]
     Active Substance: ASPIRIN
     Indication: ANTICOAGULANT THERAPY
     Route: 065
     Dates: start: 201401
  2. CALCIUM [Concomitant]
     Active Substance: CALCIUM
     Indication: BONE DISORDER
     Route: 065
     Dates: start: 201401
  3. VALSARTAN W/HYDROCHLOROTHIAZIDE TEVA [Suspect]
     Active Substance: HYDROCHLOROTHIAZIDE\VALSARTAN
     Indication: HYPERTENSION
     Dosage: 1 DOSAGE FORMS DAILY; VALSARTAN 160 MG/ HYDROCHLOROTHIAZIDE 25 MG
     Route: 048
     Dates: start: 20121009, end: 20121108
  4. VALSARTAN HUAHAI [Suspect]
     Active Substance: VALSARTAN
     Indication: HYPERTENSION
     Dosage: 320 MILLIGRAM DAILY;
     Route: 048
     Dates: start: 20160317, end: 20180404
  5. VALSARTAN HUAHAI [Suspect]
     Active Substance: VALSARTAN
     Dosage: 80 MILLIGRAM DAILY;
     Route: 048
     Dates: start: 20180222, end: 20180423
  6. VALSARTAN /HYDROCHLOROTHIAZIDE APOTEX [Suspect]
     Active Substance: HYDROCHLOROTHIAZIDE\VALSARTAN
     Indication: HYPERTENSION
     Dosage: 1 DOSAGE FORMS DAILY; VALSARTAN 320 MG /HYDROCHLOROTHIAZIDE 25 MG
     Route: 048
     Dates: start: 20140212, end: 20140515
  7. VALSARTAN HUAHAI [Suspect]
     Active Substance: VALSARTAN
     Dosage: 40 MILLIGRAM DAILY;
     Route: 048
     Dates: start: 20180124, end: 20180223
  8. VALSARTAN W/HYDROCHLOROTHIAZIDE TEVA [Suspect]
     Active Substance: HYDROCHLOROTHIAZIDE\VALSARTAN
     Dosage: 1 DOSAGE FORMS DAILY; VALSARTAN 160 MG/ HYDROCHLOROTHIAZIDE 25 MG
     Route: 048
     Dates: start: 20121120, end: 20130805
  9. VALSARTAN /HYDROCHLOROTHIAZIDE MACLEODS [Suspect]
     Active Substance: HYDROCHLOROTHIAZIDE\VALSARTAN
     Indication: HYPERTENSION
     Dosage: 1 DOSAGE FORMS DAILY; VALSARTAN 320 MG /HYDROCHLOROTHIAZIDE 25 MG
     Route: 048
     Dates: start: 20141111, end: 20151112
  10. IRON FOLATE [Concomitant]
     Indication: ANAEMIA
     Route: 065
     Dates: start: 201401
  11. PROBIOTIC [Concomitant]
     Active Substance: PROBIOTICS NOS
     Indication: GASTROINTESTINAL DISORDER PROPHYLAXIS
     Dates: start: 201401
  12. VALSARTAN HUAHAI [Suspect]
     Active Substance: VALSARTAN
     Dosage: 40 MILLIGRAM DAILY;
     Route: 048
     Dates: start: 20180215, end: 20180416
  13. VALSARTAN HUAHAI [Suspect]
     Active Substance: VALSARTAN
     Dosage: 40 MILLIGRAM DAILY;
     Route: 048
     Dates: start: 20180706, end: 20181004
  14. VARIOUS MULTIVITAMIN [Concomitant]
     Indication: ROUTINE HEALTH MAINTENANCE
     Route: 065
     Dates: start: 201401
  15. VALSARTAN W/HYDROCHLOROTHIAZIDE TEVA [Suspect]
     Active Substance: HYDROCHLOROTHIAZIDE\VALSARTAN
     Dosage: 1 DOSAGE FORMS DAILY; VALSARTAN 160 MG/ HYDROCHLOROTHIAZIDE 25 MG
     Route: 048
     Dates: start: 20121113, end: 20121120
  16. VALSARTAN W/HYDROCHLOROTHIAZIDE TEVA [Suspect]
     Active Substance: HYDROCHLOROTHIAZIDE\VALSARTAN
     Dosage: 1 DOSAGE FORMS DAILY; VALSARTAN 320 MG/ HYDROCHLOROTHIAZIDE 25 MG
     Route: 048
     Dates: start: 20130419, end: 20140212
  17. DIOVAN HCT [Suspect]
     Active Substance: HYDROCHLOROTHIAZIDE\VALSARTAN
     Indication: HYPERTENSION
     Dosage: 1 DOSAGE FORMS DAILY; VALSARTAN 320 MG HLOROTHIAZIDE 25 MG
     Route: 048
     Dates: start: 20120501, end: 20120906
  18. VALSARTAN /HYDROCHLOROTHIAZIDE APOTEX [Suspect]
     Active Substance: HYDROCHLOROTHIAZIDE\VALSARTAN
     Dosage: 1 DOSAGE FORMS DAILY; VALSARTAN 320 MG /HYDROCHLOROTHIAZIDE 25 MG
     Route: 048
     Dates: start: 20140516, end: 20141109
  19. MOVE FREE (COLLAGEN) [Concomitant]
     Indication: ARTHRALGIA
     Route: 065
     Dates: start: 201401
  20. CRANBERRY. [Concomitant]
     Active Substance: CRANBERRY
     Indication: URINARY TRACT DISORDER PROPHYLAXIS
     Route: 065
     Dates: start: 201401

REACTIONS (3)
  - Adenocarcinoma of colon [Recovered/Resolved]
  - Cystitis [Not Recovered/Not Resolved]
  - Skin irritation [Not Recovered/Not Resolved]
